FAERS Safety Report 7466793-4 (Version None)
Quarter: 2011Q2

REPORT INFORMATION
  Report Type: 
  Country: None (occurrence: None)
  Receive Date: 20110509
  Receipt Date: 20100825
  Transmission Date: 20111010
  Serious: No
  Sender: FDA-Public Use
  Company Number: US-ALEXION-A201001082

PATIENT
  Sex: Female

DRUGS (6)
  1. SOLIRIS [Suspect]
     Dosage: 900 MG, Q2W
     Route: 042
     Dates: start: 20100910
  2. SOLIRIS [Suspect]
     Indication: PAROXYSMAL NOCTURNAL HAEMOGLOBINURIA
     Dosage: 600 MG, QWX5
     Route: 042
     Dates: start: 20070430
  3. SOLIRIS [Suspect]
     Dosage: 900 MG, Q2W
     Route: 042
     Dates: end: 20100730
  4. WARFARIN [Concomitant]
     Indication: PAROXYSMAL NOCTURNAL HAEMOGLOBINURIA
     Dosage: 7.5 MG, QD
     Route: 048
  5. FOLATE [Concomitant]
     Indication: PAROXYSMAL NOCTURNAL HAEMOGLOBINURIA
     Dosage: 1.0 MG, QD
     Route: 048
  6. BENADRYL [Concomitant]
     Indication: PREMEDICATION

REACTIONS (3)
  - HEADACHE [None]
  - FATIGUE [None]
  - HAEMOGLOBINURIA [None]
